FAERS Safety Report 24710548 (Version 1)
Quarter: 2024Q4

REPORT INFORMATION
  Report Type: Report from Study
  Country: GB (occurrence: GB)
  Receive Date: 20241209
  Receipt Date: 20241209
  Transmission Date: 20250115
  Serious: Yes (Other)
  Sender: AUROBINDO
  Company Number: GB-AUROBINDO-AUR-APL-2024-058708

PATIENT
  Age: 26 Year
  Sex: Female

DRUGS (3)
  1. OLANZAPINE [Suspect]
     Active Substance: OLANZAPINE
     Indication: Borderline personality disorder
     Dosage: 5 MILLIGRAM
     Route: 065
  2. ZUCLOPENTHIXOL [Suspect]
     Active Substance: ZUCLOPENTHIXOL
     Indication: Borderline personality disorder
     Dosage: 400 MILLIGRAM
     Route: 065
  3. ZUCLOPENTHIXOL [Suspect]
     Active Substance: ZUCLOPENTHIXOL
     Dosage: 300- 400MG WEEKLY
     Route: 065

REACTIONS (2)
  - Hyperprolactinaemia [Unknown]
  - Weight increased [Unknown]
